FAERS Safety Report 6493485-0 (Version None)
Quarter: 2009Q4

REPORT INFORMATION
  Report Type: 
  Country: None (occurrence: None)
  Receive Date: 20091214
  Receipt Date: 20091201
  Transmission Date: 20100525
  Serious: No
  Sender: FDA-Public Use
  Company Number: FR-ELI_LILLY_AND_COMPANY-FR200910003526

PATIENT
  Age: 75 Year
  Sex: Male

DRUGS (10)
  1. CIALIS [Suspect]
     Indication: ERECTILE DYSFUNCTION
     Dosage: 5 MG, DAILY (1/D)
     Route: 048
     Dates: start: 20081201, end: 20090701
  2. AMLOR [Concomitant]
     Indication: HYPERTENSION
     Dosage: 1 D/F, DAILY (1/D)
     Route: 048
     Dates: start: 20030101
  3. MICARDIS [Concomitant]
     Dosage: UNK, UNKNOWN
     Route: 065
  4. SIMVASTATIN [Concomitant]
     Dosage: UNK, UNKNOWN
     Route: 065
  5. AVODART [Concomitant]
     Dosage: UNK, UNKNOWN
     Route: 065
  6. BONIVA [Concomitant]
     Dosage: UNK, UNKNOWN
     Route: 065
  7. TRIAMTERENE AND HYDROCHLOROTHIAZIDE [Concomitant]
     Indication: HYPERTENSION
     Dosage: 1 D/F, DAILY (1/D)
     Route: 048
     Dates: start: 20020101
  8. COVERSYL [Concomitant]
     Indication: HYPERTENSION
     Dosage: 1 D/F, DAILY (1/D)
     Route: 048
     Dates: start: 20070101
  9. PERMIXON [Concomitant]
     Indication: PROSTATOMEGALY
     Dosage: 2 D/F, DAILY (1/D)
     Route: 048
     Dates: start: 20000101
  10. METFORMIN HCL [Concomitant]
     Indication: DIABETES MELLITUS
     Dosage: 3 D/F, DAILY (1/D)
     Route: 048
     Dates: start: 19950101

REACTIONS (3)
  - BLOOD PRESSURE INCREASED [None]
  - MACULAR OEDEMA [None]
  - VISUAL ACUITY REDUCED [None]
